FAERS Safety Report 21364350 (Version 1)
Quarter: 2022Q3

REPORT INFORMATION
  Report Type: Spontaneous
  Country: JP (occurrence: JP)
  Receive Date: 20220922
  Receipt Date: 20220922
  Transmission Date: 20221027
  Serious: Yes (Death)
  Sender: FDA-Public Use
  Company Number: JP-PFIZER INC-PV202200067521

PATIENT
  Age: 70 Year
  Sex: Male

DRUGS (2)
  1. VFEND [Suspect]
     Active Substance: VORICONAZOLE
     Indication: Bronchopulmonary aspergillosis
     Dosage: UNK
  2. MICAFUNGIN [MICAFUNGIN SODIUM] [Concomitant]
     Dosage: UNK (ON 2ND DAY)

REACTIONS (2)
  - Death [Fatal]
  - Drug ineffective [Unknown]
